FAERS Safety Report 18783288 (Version 2)
Quarter: 2021Q1

REPORT INFORMATION
  Report Type: Spontaneous
  Country: RU (occurrence: RU)
  Receive Date: 20210125
  Receipt Date: 20210205
  Transmission Date: 20210419
  Serious: Yes (Death, Life-Threatening, Hospitalization, Other)
  Sender: FDA-Public Use
  Company Number: RU-SA-2020SA367367

PATIENT
  Age: 45 Year
  Sex: Male
  Weight: 70 kg

DRUGS (11)
  1. PANCREATIN [Concomitant]
     Active Substance: PANCRELIPASE
     Dosage: 1 DF, TID
     Dates: start: 20190802
  2. IRON [Concomitant]
     Active Substance: IRON
     Dosage: 100 MG, QM
     Route: 042
     Dates: start: 20190802
  3. BISOPROLOL [Concomitant]
     Active Substance: BISOPROLOL
     Dosage: 0.5 DF, QD
     Dates: start: 20190802
  4. OMEPRAZOLE. [Concomitant]
     Active Substance: OMEPRAZOLE
     Dosage: 20 MG, QD
     Dates: start: 20190802
  5. ASCORUTIN [Concomitant]
     Active Substance: ASCORBIC ACID\RUTIN
     Dosage: 2 DF, TID
     Dates: start: 20190802
  6. THROMBO ASS [Concomitant]
     Active Substance: ASPIRIN
     Dosage: 100 MG, QD
     Dates: start: 20190802
  7. FABRAZYME [Suspect]
     Active Substance: AGALSIDASE BETA
     Indication: FABRY^S DISEASE
     Dosage: 70 MG (2 VIALS PER INFUSION), Q2M
     Route: 041
     Dates: start: 2015, end: 20200918
  8. ATORVASTATIN [Concomitant]
     Active Substance: ATORVASTATIN
     Dosage: 20 MG, QD
     Dates: start: 20190802
  9. AMLODIPINE [Concomitant]
     Active Substance: AMLODIPINE BESYLATE
     Dosage: 10 MG, QD
     Dates: start: 20190802
  10. ERALFON [Concomitant]
     Dosage: 2000 IU, TID
     Route: 058
     Dates: start: 20190802
  11. MOXONITEX [Concomitant]
     Dosage: 0.4 MG, QD
     Dates: start: 20190802

REACTIONS (2)
  - Brain stem haemorrhage [Fatal]
  - Brain stem stroke [Fatal]

NARRATIVE: CASE EVENT DATE: 20200929
